FAERS Safety Report 6775264-X (Version None)
Quarter: 2010Q2

REPORT INFORMATION
  Report Type: 
  Country: None (occurrence: None)
  Receive Date: 20100617
  Receipt Date: 20100609
  Transmission Date: 20101027
  Serious: Yes (Other)
  Sender: FDA-Public Use
  Company Number: GXKR2010GB06371

PATIENT
  Age: 65 Year
  Sex: Male

DRUGS (19)
  1. BENZYLPENICILLIN (NGX) [Suspect]
     Indication: GANGRENE
  2. FLUCLOXACILLIN (NGX) [Suspect]
     Indication: GANGRENE
     Route: 065
  3. METRONIDAZOLE [Suspect]
     Indication: GANGRENE
     Route: 065
  4. TIMENTIN [Suspect]
     Indication: GANGRENE
     Dosage: 3.2 G, UNK
     Route: 042
     Dates: start: 20100425, end: 20100426
  5. ACETYLSALICYLIC ACID [Concomitant]
  6. BETAMETHASONE [Concomitant]
     Route: 065
  7. DIGOXIN [Concomitant]
     Route: 065
  8. FERROUS SULFATE TAB [Concomitant]
  9. GLICLAZIDE [Concomitant]
     Route: 065
  10. METFORMIN [Concomitant]
  11. MORPHINE [Concomitant]
  12. NICOTINE [Concomitant]
  13. PREDNISOLONE [Concomitant]
  14. RAMIPRIL [Concomitant]
     Route: 065
  15. RANITIDINE [Concomitant]
  16. SALBUTAMOL [Concomitant]
  17. SPIRONOLACTONE [Concomitant]
  18. TIOTROPIUM BROMIDE [Concomitant]
  19. BUMETANIDE [Concomitant]

REACTIONS (1)
  - THROMBOCYTOPENIA [None]
